FAERS Safety Report 16361674 (Version 1)
Quarter: 2019Q2

REPORT INFORMATION
  Report Type: Spontaneous
  Country: US (occurrence: US)
  Receive Date: 20190419
  Receipt Date: 20190419
  Transmission Date: 20190711
  Serious: No
  Sender: FDA-Public Use
  Company Number: None

PATIENT
  Age: 39 Year
  Sex: Male

DRUGS (9)
  1. AMOXICILLIN. [Concomitant]
     Active Substance: AMOXICILLIN
  2. NORVASC [Concomitant]
     Active Substance: AMLODIPINE BESYLATE
  3. PENICILLIN [Concomitant]
     Active Substance: PENICILLIN
  4. PROMETHAZINE HCL [Concomitant]
     Active Substance: PROMETHAZINE HYDROCHLORIDE
  5. VITAMIN D-1000 [Concomitant]
  6. OXYCODONE [Concomitant]
     Active Substance: OXYCODONE
  7. JADENU [Suspect]
     Active Substance: DEFERASIROX
     Indication: PERIPHERAL VENOUS DISEASE
     Route: 048
     Dates: start: 20151017
  8. CIPROFLOXACIN. [Concomitant]
     Active Substance: CIPROFLOXACIN
  9. FOLIC ACID. [Concomitant]
     Active Substance: FOLIC ACID

REACTIONS (1)
  - Seizure [None]

NARRATIVE: CASE EVENT DATE: 20190324
